FAERS Safety Report 5011490-8 (Version None)
Quarter: 2006Q2

REPORT INFORMATION
  Report Type: 
  Country: None (occurrence: None)
  Receive Date: 20060404
  Receipt Date: 20060123
  Transmission Date: 20061013
  Serious: No
  Sender: FDA-Public Use
  Company Number: US200601003897

PATIENT
  Sex: Female

DRUGS (3)
  1. CYMBALTA [Suspect]
     Indication: DEPRESSION
     Dosage: 30 MG, ORAL
     Route: 048
     Dates: start: 20051001
  2. ALLERGY MEDICATION [Concomitant]
  3. VITAMINS-MINERALS THERAPEUTIC (VITAMIN-MINERALS THERAPEUTIC UNKNOWN FO [Concomitant]

REACTIONS (5)
  - AGGRESSION [None]
  - DIZZINESS [None]
  - DRUG INEFFECTIVE [None]
  - NEGATIVISM [None]
  - NIGHTMARE [None]
